FAERS Safety Report 4316295-9 (Version None)
Quarter: 2004Q1

REPORT INFORMATION
  Report Type: 
  Country: None (occurrence: None)
  Receive Date: 20040310
  Receipt Date: 20031106
  Transmission Date: 20041129
  Serious: Yes (Hospitalization)
  Sender: FDA-Public Use
  Company Number: HQWYE839907NOV03

PATIENT
  Age: 58 Year
  Sex: Female
  Weight: 98.97 kg

DRUGS (6)
  1. PROTONIX [Suspect]
     Indication: GASTRIC ULCER
     Dosage: 40 MG 1 X PER DAY, ORAL
     Route: 048
     Dates: start: 20031001
  2. NORVASC [Concomitant]
  3. AVAPRO [Concomitant]
  4. NEURONTIN [Concomitant]
  5. GLUCOTROL XL [Concomitant]
  6. ALBUTEROL [Concomitant]

REACTIONS (4)
  - BRONCHITIS [None]
  - CONDITION AGGRAVATED [None]
  - DRUG INEFFECTIVE [None]
  - GASTRIC ULCER HAEMORRHAGE [None]
